FAERS Safety Report 5162285-6 (Version None)
Quarter: 2006Q4

REPORT INFORMATION
  Report Type: 
  Country: None (occurrence: None)
  Receive Date: 20060919
  Receipt Date: 20060622
  Transmission Date: 20070319
  Serious: No
  Sender: FDA-Public Use
  Company Number: 2006US001431

PATIENT
  Age: 68 Year
  Sex: Female

DRUGS (2)
  1. VESICARE [Suspect]
     Indication: DRUG USE FOR UNKNOWN INDICATION
  2. TYLENOL (DEXTROMETHORPHAN HYDROBROMIDE, PSEUDOPHEDRINE HYDROCHLORIDE, [Concomitant]

REACTIONS (2)
  - DIZZINESS [None]
  - HYPOTENSION [None]
